FAERS Safety Report 7714887-8 (Version None)
Quarter: 2011Q3

REPORT INFORMATION
  Report Type: 
  Country: None (occurrence: None)
  Receive Date: 20110829
  Receipt Date: 20100916
  Transmission Date: 20111222
  Serious: No
  Sender: FDA-Public Use
  Company Number: US-GLAXOSMITHKLINE-A0881478A

PATIENT
  Age: 66 Year
  Sex: Female

DRUGS (4)
  1. MALARONE [Suspect]
     Indication: MALARIA PROPHYLAXIS
     Dosage: 1TAB PER DAY
     Route: 048
     Dates: start: 20091101, end: 20091120
  2. MULTIVITAMIN WITH MINERALS [Concomitant]
  3. ESTROGENIC SUBSTANCE [Concomitant]
  4. VIT D [Concomitant]

REACTIONS (2)
  - NAUSEA [None]
  - MALAISE [None]
